FAERS Safety Report 8795418 (Version 2)
Quarter: 2015Q2

REPORT INFORMATION
  Report Type: Report from Study
  Country: US (occurrence: US)
  Receive Date: 20120917
  Receipt Date: 20150402
  Transmission Date: 20150821
  Serious: Yes (Death)
  Sender: FDA-Public Use
  Company Number: US-ROCHE-1129295

PATIENT
  Sex: Female
  Weight: 48.4 kg

DRUGS (6)
  1. AVASTIN [Suspect]
     Active Substance: BEVACIZUMAB
     Indication: BREAST CANCER
     Dosage: RECEIVED THERAPIES ON 07/APR/2009: 28/APR/2009, 19/MAY/2009, 09/JUN/2009, 14/JUL/2009, 04/AUG/2009,
     Route: 042
  2. BENADRYL [Concomitant]
     Active Substance: DIPHENHYDRAMINE HYDROCHLORIDE
     Dosage: RECEIVED THERAPIES ON 19/MAY/2009, 09/JUN/2009, 14/JUL/2009, 01/SEP/2009, 22/SEP/2009, 13/OCT/2009
     Route: 048
  3. ONDANSETRON [Concomitant]
     Active Substance: ONDANSETRON
     Dosage: RECEIVED THERAPIES ON 07/APR/2009: 28/APR/2009, 19/MAY/2009, 09/JUN/2009, 14/JUL/2009, 04/AUG/2009,
     Route: 042
  4. METHYLPREDNISOLONE SODIUM SUCCINATE. [Concomitant]
     Active Substance: METHYLPREDNISOLONE SODIUM SUCCINATE
     Dosage: RECEIVED THERAPIES ON RECEIVED THERAPIES ON 07/APR/2009: 28/APR/2009, 19/MAY/2009, 09/JUN/2009, 14/J
     Route: 042
  5. DOXIL [Concomitant]
     Active Substance: DOXORUBICIN HYDROCHLORIDE
     Dosage: RECEIVED THERAPIES ON 19/MAY/2009, 09/JUN/2009, 14/JUL/2009, 04/AUG/2009, 01/SEP/2009, 22/SEP/2009,
     Route: 065
  6. DIPHENHYDRAMINE [Concomitant]
     Active Substance: DIPHENHYDRAMINE
     Dosage: RECEIVED THERAPIES ON 07/APR/2009: 28/APR/2009, 04/AUG/2009, 03/NOV/2009
     Route: 048

REACTIONS (4)
  - Death [Fatal]
  - Skin warm [Unknown]
  - Fatigue [Unknown]
  - Dry skin [Unknown]
